FAERS Safety Report 10868818 (Version 1)
Quarter: 2015Q1

REPORT INFORMATION
  Report Type: Spontaneous
  Country: US (occurrence: US)
  Receive Date: 20150225
  Receipt Date: 20150225
  Transmission Date: 20150721
  Serious: Yes (Hospitalization)
  Sender: FDA-Public Use
  Company Number: US-MYLANLABS-2014SP002878

PATIENT
  Age: 66 Year
  Sex: Female
  Weight: 40.82 kg

DRUGS (3)
  1. VANCOMYCIN [Suspect]
     Active Substance: VANCOMYCIN
     Route: 048
  2. VANCOMYCIN [Suspect]
     Active Substance: VANCOMYCIN
     Route: 042
  3. VANCOMYCIN [Suspect]
     Active Substance: VANCOMYCIN
     Indication: PRODUCT USED FOR UNKNOWN INDICATION

REACTIONS (5)
  - Neurolysis [Unknown]
  - Pain [Unknown]
  - Mobility decreased [Unknown]
  - Neuropathy peripheral [Unknown]
  - Fall [Unknown]

NARRATIVE: CASE EVENT DATE: 201309
